FAERS Safety Report 19678657 (Version 1)
Quarter: 2021Q3

REPORT INFORMATION
  Report Type: Spontaneous
  Country: TH (occurrence: TH)
  Receive Date: 20210810
  Receipt Date: 20210810
  Transmission Date: 20211014
  Serious: Yes (Hospitalization, Other)
  Sender: FDA-Public Use
  Company Number: TH-AUROBINDO-09-AUR-09942

PATIENT
  Age: 36 Year
  Sex: Female

DRUGS (3)
  1. LAMIVUDINE TABLETS 150MG [Suspect]
     Active Substance: LAMIVUDINE
     Indication: HIV INFECTION
     Dosage: UNK UNK,UNK,
     Route: 065
  2. NEVIRAPINE TABLETS 200MG [Suspect]
     Active Substance: NEVIRAPINE
     Indication: HIV INFECTION
     Dosage: UNK UNK,UNK,
     Route: 065
  3. STAVUDINE CAPSULES USP 30 MG [Suspect]
     Active Substance: STAVUDINE
     Indication: HIV INFECTION
     Dosage: UNK UNK,UNK,
     Route: 065

REACTIONS (16)
  - Asthenia [Recovered/Resolved]
  - Bacterial test positive [Recovered/Resolved]
  - Gait disturbance [Recovered/Resolved]
  - Myelopathy [Recovered/Resolved]
  - Meningoradiculitis [Recovered/Resolved]
  - Hypoaesthesia [Recovered/Resolved]
  - Cryptococcus test positive [Recovered/Resolved]
  - Bladder discomfort [Recovered/Resolved]
  - Pyrexia [Recovered/Resolved]
  - Spinal cord disorder [Recovered/Resolved]
  - Malaise [Recovered/Resolved]
  - Fungal infection [Recovered/Resolved]
  - Radiculopathy [Recovered/Resolved]
  - Abdominal discomfort [Recovered/Resolved]
  - Paresis [Recovered/Resolved]
  - Hyperreflexia [Recovered/Resolved]
